FAERS Safety Report 15681366 (Version 2)
Quarter: 2018Q4

REPORT INFORMATION
  Report Type: Spontaneous
  Country: JP (occurrence: JP)
  Receive Date: 20181203
  Receipt Date: 20181219
  Transmission Date: 20190205
  Serious: No
  Sender: FDA-Public Use
  Company Number: JP-ELI_LILLY_AND_COMPANY-JP201811012837

PATIENT
  Age: 78 Year
  Sex: Male

DRUGS (3)
  1. URIEF [Concomitant]
     Active Substance: SILODOSIN
     Indication: BENIGN PROSTATIC HYPERPLASIA
     Dosage: 1 DF, BID
     Route: 048
  2. ZALUTIA [Suspect]
     Active Substance: TADALAFIL
     Indication: BENIGN PROSTATIC HYPERPLASIA
     Dosage: 1 DF, DAILY
     Route: 048
     Dates: start: 20181113
  3. TEARBALANCE [Concomitant]
     Active Substance: HYALURONATE SODIUM
     Dosage: UNK
     Route: 047

REACTIONS (1)
  - Retinal degeneration [Unknown]

NARRATIVE: CASE EVENT DATE: 20181113
